FAERS Safety Report 18972911 (Version 3)
Quarter: 2021Q3

REPORT INFORMATION
  Report Type: Report from Study
  Country: None (occurrence: CA)
  Receive Date: 20210305
  Receipt Date: 20210906
  Transmission Date: 20211014
  Serious: Yes (Life-Threatening)
  Sender: FDA-Public Use
  Company Number: CA-ABBVIE-21K-028-3802513-00

PATIENT
  Sex: Female

DRUGS (8)
  1. IMBRUVICA [Suspect]
     Active Substance: IBRUTINIB
     Dosage: DAY 3
     Route: 048
     Dates: start: 201910
  2. IMBRUVICA [Suspect]
     Active Substance: IBRUTINIB
     Route: 048
     Dates: start: 202102
  3. IMBRUVICA [Suspect]
     Active Substance: IBRUTINIB
     Dosage: DAY 1 AND 2
     Route: 048
  4. IMBRUVICA [Suspect]
     Active Substance: IBRUTINIB
     Dosage: DAY 1 AND 2
     Route: 048
     Dates: start: 202001
  5. IMBRUVICA [Suspect]
     Active Substance: IBRUTINIB
     Route: 048
     Dates: start: 202001
  6. IMBRUVICA [Suspect]
     Active Substance: IBRUTINIB
     Dosage: DAY 1 AND 2
     Route: 048
     Dates: start: 202102
  7. IMBRUVICA [Suspect]
     Active Substance: IBRUTINIB
     Indication: WALDENSTROM^S MACROGLOBULINAEMIA
     Route: 048
  8. IMBRUVICA [Suspect]
     Active Substance: IBRUTINIB
     Route: 048
     Dates: start: 20190507

REACTIONS (9)
  - Headache [Recovering/Resolving]
  - Malaise [Recovering/Resolving]
  - Back pain [Recovering/Resolving]
  - Blood pressure increased [Recovering/Resolving]
  - Blood immunoglobulin M increased [Recovering/Resolving]
  - Flank pain [Recovering/Resolving]
  - Fatigue [Recovering/Resolving]
  - Idiopathic pulmonary fibrosis [Not Recovered/Not Resolved]
  - Ocular discomfort [Recovering/Resolving]
